FAERS Safety Report 21960511 (Version 8)
Quarter: 2023Q1

REPORT INFORMATION
  Report Type: Spontaneous
  Country: US (occurrence: US)
  Receive Date: 20230207
  Receipt Date: 20230329
  Transmission Date: 20230417
  Serious: No
  Sender: FDA-Public Use
  Company Number: US-AMGEN-USASP2023017649

PATIENT
  Age: 84 Year
  Sex: Female
  Weight: 54.4 kg

DRUGS (1)
  1. NEULASTA [Suspect]
     Active Substance: PEGFILGRASTIM
     Indication: Prophylaxis
     Dosage: UNK
     Route: 065

REACTIONS (3)
  - Device adhesion issue [Unknown]
  - Wrong technique in product usage process [Unknown]
  - Device occlusion [Unknown]

NARRATIVE: CASE EVENT DATE: 20230101
